FAERS Safety Report 4370901-1 (Version None)
Quarter: 2004Q2

REPORT INFORMATION
  Report Type: 
  Country: None (occurrence: None)
  Receive Date: 20040601
  Receipt Date: 20040511
  Transmission Date: 20050107
  Serious: Yes (Hospitalization)
  Sender: FDA-Public Use
  Company Number: ATO-04-0483

PATIENT
  Age: 68 Year
  Sex: Male

DRUGS (2)
  1. TRISENOX [Suspect]
     Indication: MYELODYSPLASTIC SYNDROME
     Dosage: (0.15MG/KG, QD)
     Route: 042
     Dates: start: 20040301, end: 20040330
  2. TRISENOX [Suspect]
     Indication: MYELODYSPLASTIC SYNDROME
     Dosage: 0.25 MG/KG 2X/WK 3 WKS ON 1 WK OFF)
     Route: 042
     Dates: start: 20040503, end: 20040510

REACTIONS (4)
  - LIVER ABSCESS [None]
  - PLATELET COUNT DECREASED [None]
  - PYREXIA [None]
  - WHITE BLOOD CELL COUNT DECREASED [None]
